FAERS Safety Report 18129147 (Version 1)
Quarter: 2020Q3

REPORT INFORMATION
  Report Type: Spontaneous
  Country: US (occurrence: US)
  Receive Date: 20200808
  Receipt Date: 20200808
  Transmission Date: 20201103
  Serious: No
  Sender: FDA-Public Use
  Company Number: None

PATIENT
  Age: 41 Year
  Sex: Female
  Weight: 65.25 kg

DRUGS (3)
  1. ELURYNG [Suspect]
     Active Substance: ETHINYL ESTRADIOL\ETONOGESTREL
     Indication: CONTRACEPTION
     Dosage: ?          QUANTITY:3 RINGS;OTHER FREQUENCY:ONCE A MONTH;?
     Route: 067
     Dates: start: 20200329, end: 20200614
  2. ALBUTEROL INHALER PRN [Concomitant]
  3. SINGULAIR [Concomitant]
     Active Substance: MONTELUKAST SODIUM

REACTIONS (10)
  - Constipation [None]
  - Muscle spasms [None]
  - Product substitution issue [None]
  - Headache [None]
  - Abdominal distension [None]
  - Mood swings [None]
  - Abdominal discomfort [None]
  - Nausea [None]
  - Decreased appetite [None]
  - Cholelithiasis [None]

NARRATIVE: CASE EVENT DATE: 20200511
